FAERS Safety Report 23248914 (Version 1)
Quarter: 2023Q4

REPORT INFORMATION
  Report Type: Report from Study
  Country: CA (occurrence: CA)
  Receive Date: 20231201
  Receipt Date: 20231201
  Transmission Date: 20240110
  Serious: Yes (Other)
  Sender: FDA-Public Use
  Company Number: CA-JNJFOC-20230912576

PATIENT
  Age: 76 Year
  Sex: Female

DRUGS (2)
  1. MACITENTAN [Suspect]
     Active Substance: MACITENTAN
     Indication: Pulmonary hypertension
     Route: 048
     Dates: start: 20230816
  2. OXYGEN [Concomitant]
     Active Substance: OXYGEN
     Route: 045

REACTIONS (3)
  - Therapy change [Not Recovered/Not Resolved]
  - Joint swelling [Recovering/Resolving]
  - Dyspnoea [Not Recovered/Not Resolved]
